FAERS Safety Report 15725565 (Version 1)
Quarter: 2018Q4

REPORT INFORMATION
  Report Type: Spontaneous
  Country: NL (occurrence: NL)
  Receive Date: 20181215
  Receipt Date: 20181215
  Transmission Date: 20190205
  Serious: Yes (Congenital Anomaly, Other)
  Sender: FDA-Public Use
  Company Number: NL-ACCORD-096287

PATIENT

DRUGS (5)
  1. RETINOL [Concomitant]
     Active Substance: RETINOL
  2. ESCITALOPRAM [Suspect]
     Active Substance: ESCITALOPRAM OXALATE
     Indication: DEPRESSION
     Dosage: 1 DD 1
     Route: 064
  3. CYKLOKAPRON [Concomitant]
     Active Substance: TRANEXAMIC ACID
  4. COLECALCIFEROL [Concomitant]
     Active Substance: CHOLECALCIFEROL
  5. FOLIUMZUUR [Concomitant]
     Active Substance: FOLIC ACID

REACTIONS (2)
  - Foetal exposure during pregnancy [Unknown]
  - Congenital oral malformation [Unknown]
